FAERS Safety Report 24087145 (Version 1)
Quarter: 2024Q3

REPORT INFORMATION
  Report Type: Spontaneous
  Country: GB (occurrence: GB)
  Receive Date: 20240713
  Receipt Date: 20240713
  Transmission Date: 20241016
  Serious: Yes (Hospitalization, Other)
  Sender: TORRENT
  Company Number: None

PATIENT
  Sex: Male
  Weight: 69 kg

DRUGS (1)
  1. MONTELUKAST [Suspect]
     Active Substance: MONTELUKAST SODIUM
     Indication: Asthma
     Route: 065
     Dates: start: 2010, end: 202403

REACTIONS (3)
  - Depression [Recovering/Resolving]
  - Mental impairment [Recovering/Resolving]
  - Anxiety [Recovering/Resolving]

NARRATIVE: CASE EVENT DATE: 20200101
